FAERS Safety Report 5899142-3 (Version None)
Quarter: 2008Q3

REPORT INFORMATION
  Report Type: 
  Country: None (occurrence: None)
  Receive Date: 20080925
  Receipt Date: 20080909
  Transmission Date: 20090109
  Serious: No
  Sender: FDA-Public Use
  Company Number: US-B.I. PHARMACEUTICALS,INC./RIDGEFIELD-2008-BP-14288BP

PATIENT
  Sex: Female

DRUGS (3)
  1. ZANTAC 75 [Suspect]
     Indication: GASTROOESOPHAGEAL REFLUX DISEASE
     Dosage: 75MG
     Route: 048
  2. TYLENOL (CAPLET) [Concomitant]
     Indication: FIBROMYALGIA
  3. CHLOR-TRIMETON [Concomitant]

REACTIONS (2)
  - FEELING JITTERY [None]
  - INNER EAR DISORDER [None]
